FAERS Safety Report 10230715 (Version 1)
Quarter: 2014Q2

REPORT INFORMATION
  Report Type: Spontaneous
  Country: US (occurrence: US)
  Receive Date: 20140611
  Receipt Date: 20140611
  Transmission Date: 20141212
  Serious: No
  Sender: FDA-Public Use
  Company Number: US-PFIZER INC-2014155703

PATIENT
  Age: 37 Year
  Sex: Female
  Weight: 63.49 kg

DRUGS (8)
  1. SPIRONOLACTONE [Suspect]
     Dosage: UNK
     Dates: start: 20140410, end: 201405
  2. KORLYM [Suspect]
     Indication: CUSHING^S SYNDROME
     Dosage: 300 MG, 1X/DAY
     Route: 048
     Dates: start: 201306, end: 20130624
  3. KORLYM [Suspect]
     Dosage: 300 MG, ALTERNATE DAY
     Route: 048
     Dates: start: 2013, end: 2013
  4. KORLYM [Suspect]
     Dosage: 1500 MG, 1X/DAY
     Route: 048
     Dates: end: 201404
  5. KORLYM [Suspect]
     Dosage: 1200 MG, 1X/DAY
     Route: 048
     Dates: start: 20140427, end: 2014
  6. KORLYM [Suspect]
     Dosage: 1200 MG, 1X/DAY
     Route: 048
     Dates: start: 2014
  7. FLUTAMIDE [Concomitant]
     Dosage: UNK
     Dates: start: 20140409
  8. MULTIVITAMINS [Concomitant]
     Dosage: UNK

REACTIONS (23)
  - Vaginal haemorrhage [Unknown]
  - Menstruation irregular [Unknown]
  - Urticaria [Not Recovered/Not Resolved]
  - Rash [Not Recovered/Not Resolved]
  - Drug hypersensitivity [Unknown]
  - Constipation [Unknown]
  - Nausea [Unknown]
  - Blood cortisol increased [Unknown]
  - Fatigue [Unknown]
  - Irritability [Unknown]
  - Muscular weakness [Unknown]
  - Skin atrophy [Unknown]
  - Skin ulcer [Unknown]
  - Contusion [Unknown]
  - Hirsutism [Unknown]
  - Alopecia [Recovering/Resolving]
  - Thirst [Unknown]
  - Pollakiuria [Unknown]
  - Weight increased [Recovering/Resolving]
  - Weight decreased [Unknown]
  - Insomnia [Unknown]
  - Restlessness [Unknown]
  - Drug ineffective [Unknown]
